FAERS Safety Report 16981969 (Version 1)
Quarter: 2019Q4

REPORT INFORMATION
  Report Type: Spontaneous
  Country: US (occurrence: US)
  Receive Date: 20191101
  Receipt Date: 20191101
  Transmission Date: 20200122
  Serious: No
  Sender: FDA-Public Use
  Company Number: US-APOTEX-2019AP023465

PATIENT
  Sex: Male

DRUGS (1)
  1. ATORVASTATIN CALCIUM. [Suspect]
     Active Substance: ATORVASTATIN CALCIUM
     Indication: BLOOD CHOLESTEROL ABNORMAL
     Dosage: 1 DF, QD, IN THE EVENING
     Route: 048
     Dates: start: 2019, end: 20191006

REACTIONS (4)
  - Insomnia [Not Recovered/Not Resolved]
  - Tinnitus [Not Recovered/Not Resolved]
  - Tendonitis [Not Recovered/Not Resolved]
  - Tinnitus [Not Recovered/Not Resolved]

NARRATIVE: CASE EVENT DATE: 2019
